FAERS Safety Report 5972198-5 (Version None)
Quarter: 2008Q4

REPORT INFORMATION
  Report Type: 
  Country: None (occurrence: None)
  Receive Date: 20081201
  Receipt Date: 20071022
  Transmission Date: 20090506
  Serious: No
  Sender: FDA-Public Use
  Company Number: US-TEVA-163471USA

PATIENT
  Sex: Male

DRUGS (1)
  1. SALBUTAMOL SULFATE INHALATION, 0.09 MG [Suspect]
     Dosage: USAGE 2-TIMES WITH 2-PUFFS EACH.
     Route: 048

REACTIONS (1)
  - URTICARIA [None]
